FAERS Safety Report 5279037-9 (Version None)
Quarter: 2007Q1

REPORT INFORMATION
  Report Type: 
  Country: None (occurrence: None)
  Receive Date: 20070328
  Receipt Date: 20061201
  Transmission Date: 20070707
  Serious: No
  Sender: FDA-Public Use
  Company Number: US-AMGEN-US201994

PATIENT
  Age: 58 Year
  Sex: Female

DRUGS (3)
  1. ARANESP [Suspect]
     Indication: ANAEMIA OF MALIGNANT DISEASE
     Dates: start: 20061101
  2. NEULASTA [Suspect]
     Indication: CHEMOTHERAPY
     Dates: start: 20061101
  3. TAXOL [Concomitant]
     Dates: start: 20061101

REACTIONS (3)
  - BONE PAIN [None]
  - INJECTION SITE IRRITATION [None]
  - INJECTION SITE PAIN [None]
